FAERS Safety Report 4709802-5 (Version None)
Quarter: 2005Q3

REPORT INFORMATION
  Report Type: 
  Country: None (occurrence: None)
  Receive Date: 20050708
  Receipt Date: 20050607
  Transmission Date: 20060218
  Serious: Yes (Hospitalization, Disabling)
  Sender: FDA-Public Use
  Company Number: PHBS2005CH08062

PATIENT
  Age: 75 Year
  Sex: Female

DRUGS (6)
  1. ZOMETA [Suspect]
     Indication: METASTASES TO BONE
     Route: 042
     Dates: start: 20030501, end: 20050501
  2. ARIMIDEX [Concomitant]
     Indication: BREAST CANCER
     Dosage: 1 MG/D
     Dates: start: 20040401, end: 20050501
  3. SEROPRAM [Concomitant]
     Indication: DEPRESSION
     Dosage: 20 MG/D
     Route: 065
     Dates: start: 20040101, end: 20050501
  4. NEXIUM [Concomitant]
     Indication: GASTROOESOPHAGEAL REFLUX DISEASE
     Route: 065
     Dates: start: 20030701, end: 20050501
  5. MARCOUMAR [Concomitant]
     Indication: PULMONARY EMBOLISM
     Dates: start: 20030201, end: 20050501
  6. AREDIA [Suspect]
     Indication: METASTASES TO BONE
     Route: 042
     Dates: start: 20020201, end: 20030401

REACTIONS (6)
  - ABSCESS JAW [None]
  - ASEPTIC NECROSIS BONE [None]
  - BONE TRIMMING [None]
  - DENTAL TREATMENT [None]
  - OSTEOMYELITIS [None]
  - OSTEONECROSIS [None]
